FAERS Safety Report 10677495 (Version 2)
Quarter: 2015Q2

REPORT INFORMATION
  Report Type: Spontaneous
  Country: US (occurrence: US)
  Receive Date: 20141228
  Receipt Date: 20150527
  Transmission Date: 20150821
  Serious: Yes (Other)
  Sender: FDA-Public Use
  Company Number: US-ASTRAZENECA-2014SE96558

PATIENT
  Age: 67 Year
  Sex: Female
  Weight: 127 kg

DRUGS (6)
  1. VITAMINS [Concomitant]
     Active Substance: VITAMINS
  2. NOVALOG INSULIN [Concomitant]
     Indication: DIABETES MELLITUS
     Dosage: DAILY
  3. LANTUS [Concomitant]
     Active Substance: INSULIN GLARGINE
     Indication: DIABETES MELLITUS
     Dosage: DAILY
  4. TOPROL XL [Suspect]
     Active Substance: METOPROLOL SUCCINATE
     Indication: CARDIAC DISORDER
     Route: 048
  5. TOPROL XL [Suspect]
     Active Substance: METOPROLOL SUCCINATE
     Indication: CARDIAC DISORDER
     Dosage: METOPROLOL SUCCINATE (WATSON)
     Route: 048
  6. CALCIUM [Concomitant]
     Active Substance: CALCIUM
     Indication: SUPPLEMENTATION THERAPY

REACTIONS (7)
  - Hypoaesthesia [Not Recovered/Not Resolved]
  - Rotator cuff syndrome [Unknown]
  - Gastrointestinal disorder [Unknown]
  - Coeliac disease [Unknown]
  - Blood calcium decreased [Unknown]
  - Diarrhoea [Unknown]
  - Osteoporosis [Not Recovered/Not Resolved]

NARRATIVE: CASE EVENT DATE: 2011
